FAERS Safety Report 6801633-5 (Version None)
Quarter: 2010Q2

REPORT INFORMATION
  Report Type: 
  Country: None (occurrence: None)
  Receive Date: 20100629
  Receipt Date: 20100623
  Transmission Date: 20101027
  Serious: Yes (Life-Threatening, Hospitalization, Other)
  Sender: FDA-Public Use
  Company Number: GB-MERCK-1005GBR00092

PATIENT
  Age: 52 Year
  Sex: Male

DRUGS (6)
  1. ZOCOR [Suspect]
     Route: 048
  2. FUSIDIC ACID [Suspect]
     Indication: LOCALISED INFECTION
     Route: 065
  3. FLOXACILLIN [Concomitant]
     Indication: OSTEOMYELITIS
     Route: 065
  4. AMLODIPINE [Concomitant]
     Route: 065
  5. INSULIN LISPRO, BIPHASIC ISOPHANE [INJECTION] [Concomitant]
     Indication: DIABETES MELLITUS
     Route: 065
  6. INSULIN LISPRO, BIPHASIC ISOPHANE [INJECTION] [Concomitant]
     Route: 065

REACTIONS (2)
  - DRUG INTERACTION [None]
  - RHABDOMYOLYSIS [None]
